FAERS Safety Report 4705224-1 (Version None)
Quarter: 2005Q2

REPORT INFORMATION
  Report Type: 
  Country: None (occurrence: None)
  Receive Date: 20050628
  Receipt Date: 20050617
  Transmission Date: 20051028
  Serious: Yes (Hospitalization)
  Sender: FDA-Public Use
  Company Number: 26804

PATIENT
  Age: 82 Year
  Sex: Female

DRUGS (4)
  1. FLECAINIDE ACETATE [Suspect]
     Dosage: 100 MG (100 MG, 1 IN 1 DAY (S)) ORAL
     Route: 048
  2. VANCOMYCIN [Suspect]
     Indication: CATHETER RELATED COMPLICATION
     Dosage: (500 MG, 2 IN 1 WEEK (S)) INTRAVENOUS
     Route: 042
     Dates: start: 20050501
  3. ZOPICLONE (ZOPICLONE) [Suspect]
     Dosage: 1 DOSAGE FORMS (1 DOSAGE FORMS, 1 IN 1 DAY (S)) ORAL
     Route: 048
  4. FUROSEMIDE [Suspect]
     Dosage: (125 MG, 2 IN 1 WEEK (S)) ORAL
     Route: 048

REACTIONS (6)
  - CATHETER RELATED INFECTION [None]
  - DRUG LEVEL INCREASED [None]
  - NYSTAGMUS [None]
  - STAPHYLOCOCCAL INFECTION [None]
  - VERTIGO [None]
  - VESTIBULAR DISORDER [None]
